FAERS Safety Report 8027709-5 (Version None)
Quarter: 2012Q1

REPORT INFORMATION
  Report Type: 
  Country: None (occurrence: None)
  Receive Date: 20120106
  Receipt Date: 20120104
  Transmission Date: 20120608
  Serious: Yes (Other)
  Sender: FDA-Public Use
  Company Number: US-BAYER-2012-001303

PATIENT
  Sex: Female

DRUGS (1)
  1. MIRENA [Suspect]
     Indication: CONTRACEPTION
     Dosage: UNK
     Dates: start: 20101101

REACTIONS (8)
  - NAUSEA [None]
  - PREGNANCY WITH CONTRACEPTIVE DEVICE [None]
  - MENSTRUATION IRREGULAR [None]
  - MEDICAL DEVICE COMPLICATION [None]
  - VOMITING [None]
  - VAGINAL HAEMORRHAGE [None]
  - DEVICE EXPULSION [None]
  - ABDOMINAL PAIN [None]
